FAERS Safety Report 6377297-4 (Version None)
Quarter: 2009Q3

REPORT INFORMATION
  Report Type: 
  Country: None (occurrence: None)
  Receive Date: 20090923
  Receipt Date: 20090923
  Transmission Date: 20100115
  Serious: No
  Sender: FDA-Public Use
  Company Number: None

PATIENT
  Age: 56 Year
  Sex: Female
  Weight: 143.6 kg

DRUGS (14)
  1. SCOPOLAMINE [Suspect]
     Indication: NAUSEA
     Dosage: 0.6MG IV ONCE
     Route: 042
  2. DIPHENHYDRAMINE HCL [Suspect]
     Indication: PRURITUS
     Dosage: 50MG PO ONCE
     Route: 048
  3. DIPHENHYDRAMINE HCL [Suspect]
     Indication: RASH
     Dosage: 50MG PO ONCE
     Route: 048
  4. HYDROXYZINE [Concomitant]
  5. ALLOPURINOL [Concomitant]
  6. BISACODYL [Concomitant]
  7. COLCHINE [Concomitant]
  8. HYDROMORPHONE [Concomitant]
  9. INSULINE GLARGINE [Concomitant]
  10. LANSOPRAZOLE [Concomitant]
  11. LEVOTHYROXINE SODIUM [Concomitant]
  12. MONTELUKAST [Concomitant]
  13. NICOTINE [Concomitant]
  14. SENNA [Concomitant]

REACTIONS (13)
  - BLOOD POTASSIUM DECREASED [None]
  - BLOOD SODIUM DECREASED [None]
  - CONFUSIONAL STATE [None]
  - DYSARTHRIA [None]
  - MENTAL STATUS CHANGES [None]
  - MYDRIASIS [None]
  - NAUSEA [None]
  - OEDEMA PERIPHERAL [None]
  - PAIN IN EXTREMITY [None]
  - PRURITUS [None]
  - PYREXIA [None]
  - RASH [None]
  - SOMNOLENCE [None]
